FAERS Safety Report 4361371-8 (Version None)
Quarter: 2004Q2

REPORT INFORMATION
  Report Type: 
  Country: None (occurrence: None)
  Receive Date: 20040517
  Receipt Date: 20040504
  Transmission Date: 20050107
  Serious: Yes (Hospitalization)
  Sender: FDA-Public Use
  Company Number: 04P-163-0259634-00

PATIENT
  Age: 65 Year
  Sex: Female
  Weight: 64.4108 kg

DRUGS (13)
  1. HUMIRA 40 MG/ 0.8 ML PRE-FILLED SYRINGE (HUMIRA) (ADALIMUMAB) [Suspect]
     Indication: RHEUMATOID ARTHRITIS
     Dosage: 40 MG, 1 IN 2 WK, SUBCUTANEOUS
     Route: 058
     Dates: start: 20030101, end: 20040401
  2. FLURBIPROFEN [Concomitant]
  3. PANTOPRAZOLE [Concomitant]
  4. PREDNISONE [Concomitant]
  5. HYDROXYCHLOROQUINE PHOSPHATE [Concomitant]
  6. BISELECT [Concomitant]
  7. METHOTREXATE SODIUM [Concomitant]
  8. ALENDRONATE SODIUM [Concomitant]
  9. PROPACET 100 [Concomitant]
  10. AMITRIPTYLINE HCL [Concomitant]
  11. MACROGOL [Concomitant]
  12. DOCUSATE SODIUM [Concomitant]
  13. CALCIUM WITH VITAMIN D [Concomitant]

REACTIONS (4)
  - BLISTER [None]
  - BLOOD PRESSURE DECREASED [None]
  - LOCALISED INFECTION [None]
  - PYREXIA [None]
